FAERS Safety Report 7951461-2 (Version None)
Quarter: 2011Q4

REPORT INFORMATION
  Report Type: 
  Country: None (occurrence: None)
  Receive Date: 20111201
  Receipt Date: 20111122
  Transmission Date: 20120403
  Serious: Yes (Hospitalization, Other)
  Sender: FDA-Public Use
  Company Number: US-BAYER-2011-036394

PATIENT
  Sex: Female
  Weight: 96.599 kg

DRUGS (4)
  1. AUGMENTIN [Concomitant]
     Indication: SINUSITIS
     Dosage: 500 MG, TID
     Dates: start: 20061115
  2. YASMIN [Suspect]
     Indication: CONTRACEPTION
  3. AUGMENTIN [Concomitant]
     Indication: BRONCHITIS
  4. REGLAN [Concomitant]
     Indication: VOMITING
     Dosage: UNK
     Dates: start: 20061202

REACTIONS (3)
  - GALLBLADDER DISORDER [None]
  - CHOLELITHIASIS [None]
  - PAIN [None]
